FAERS Safety Report 6747047-8 (Version None)
Quarter: 2010Q2

REPORT INFORMATION
  Report Type: 
  Country: None (occurrence: None)
  Receive Date: 20100528
  Receipt Date: 20100518
  Transmission Date: 20101027
  Serious: Yes (Other)
  Sender: FDA-Public Use
  Company Number: DE-ROCHE-705378

PATIENT
  Age: 60 Year
  Sex: Female

DRUGS (2)
  1. XELODA [Suspect]
     Dosage: AS MONOTHERAPY UNTIL PROGRESSION
     Route: 065
  2. HERCEPTIN [Suspect]
     Route: 065
     Dates: start: 20100329

REACTIONS (2)
  - CONJUNCTIVITIS [None]
  - MALIGNANT NEOPLASM PROGRESSION [None]
